FAERS Safety Report 7123994-2 (Version None)
Quarter: 2010Q4

REPORT INFORMATION
  Report Type: 
  Country: None (occurrence: None)
  Receive Date: 20101126
  Receipt Date: 20101117
  Transmission Date: 20110411
  Serious: Yes (Other)
  Sender: FDA-Public Use
  Company Number: US-PFIZER INC-2006040903

PATIENT
  Sex: Male
  Weight: 53.061 kg

DRUGS (8)
  1. NEURONTIN [Suspect]
     Indication: CONVULSION
     Dosage: 300 MG, 3X/DAY
     Route: 065
  2. NEURONTIN [Suspect]
     Indication: PAIN
  3. GABAPENTIN [Suspect]
     Indication: CONVULSION
     Dosage: UNK
     Route: 065
     Dates: start: 20050101, end: 20050101
  4. GABAPENTIN [Suspect]
     Indication: PAIN
  5. CODEINE [Concomitant]
     Route: 065
  6. MORPHINE [Concomitant]
     Dosage: UNK
  7. ACETYLSALICYLIC ACID [Concomitant]
     Dosage: 20 MG, 2X/DAY
  8. METHYLPHENIDATE [Concomitant]
     Dosage: UNK

REACTIONS (4)
  - BODY HEIGHT DECREASED [None]
  - CONVULSION [None]
  - DRUG INEFFECTIVE [None]
  - WEIGHT DECREASED [None]
